FAERS Safety Report 6188906-7 (Version None)
Quarter: 2009Q2

REPORT INFORMATION
  Report Type: 
  Country: None (occurrence: None)
  Receive Date: 20090513
  Receipt Date: 20090505
  Transmission Date: 20091009
  Serious: Yes (Other)
  Sender: FDA-Public Use
  Company Number: PHHY2009BR17535

PATIENT
  Sex: Female

DRUGS (7)
  1. DIOVAN [Suspect]
     Indication: HYPERTENSION
     Dosage: ONE TABLET BID
     Dates: start: 20090325
  2. INDAPEN [Concomitant]
     Indication: HYPERTENSION
     Dosage: ONE TABLET IN THE MORNING
     Route: 048
  3. ATENOLOL [Concomitant]
     Indication: HYPERTENSION
     Dosage: ONE TABLET BID
  4. VASLIP [Concomitant]
     Indication: BLOOD CHOLESTEROL
     Dosage: ONE TABLET AT NIGHT
     Route: 048
  5. ZETIA [Concomitant]
     Indication: BLOOD CHOLESTEROL
     Dosage: ONE TABLET AFTER DINER
  6. CIPROFIBRATE [Concomitant]
     Indication: BLOOD CHOLESTEROL
     Dosage: ONE TABLET DAILY
  7. ACETYLSALICYLIC ACID [Concomitant]
     Indication: BLOOD CHOLESTEROL
     Dosage: TWO TABLET AFTER THE LUNCH

REACTIONS (4)
  - BLOOD PRESSURE INCREASED [None]
  - DRUG INEFFECTIVE [None]
  - HEADACHE [None]
  - HEART RATE DECREASED [None]
